FAERS Safety Report 5015460-5 (Version None)
Quarter: 2006Q2

REPORT INFORMATION
  Report Type: 
  Country: None (occurrence: None)
  Receive Date: 20060530
  Receipt Date: 20060530
  Transmission Date: 20061013
  Serious: No
  Sender: FDA-Public Use
  Company Number: None

PATIENT
  Age: 79 Year
  Sex: Female

DRUGS (1)
  1. MIDAZOLAM HCL [Suspect]
     Dosage: 1 MG IM
     Route: 030
     Dates: end: 20050524

REACTIONS (4)
  - APNOEA [None]
  - BLOOD PRESSURE DIASTOLIC DECREASED [None]
  - POST PROCEDURAL COMPLICATION [None]
  - RESPIRATORY RATE INCREASED [None]
